FAERS Safety Report 19895614 (Version 1)
Quarter: 2021Q3

REPORT INFORMATION
  Report Type: Spontaneous
  Country: IE (occurrence: IE)
  Receive Date: 20210929
  Receipt Date: 20210929
  Transmission Date: 20211014
  Serious: Yes (Hospitalization)
  Sender: FDA-Public Use
  Company Number: IE-TEVA-2021-IE-1958179

PATIENT
  Age: 34 Year
  Sex: Female

DRUGS (8)
  1. CALCIUM CARBONATE. [Interacting]
     Active Substance: CALCIUM CARBONATE
     Indication: MINERAL SUPPLEMENTATION
     Route: 048
  2. VITAMIN D [Suspect]
     Active Substance: VITAMIN D NOS
     Indication: SUPPLEMENTATION THERAPY
     Route: 065
  3. OMEPRAZOLE. [Suspect]
     Active Substance: OMEPRAZOLE
     Indication: GASTRINOMA
     Dosage: 80 MILLIGRAM DAILY;
     Route: 065
  4. ALFACALCIDOL [Suspect]
     Active Substance: ALFACALCIDOL
     Indication: MINERAL SUPPLEMENTATION
     Route: 048
  5. CALCIUM GLUCONATE. [Suspect]
     Active Substance: CALCIUM GLUCONATE
     Indication: MINERAL SUPPLEMENTATION
     Route: 041
  6. MAGNESIUM [Suspect]
     Active Substance: MAGNESIUM
     Indication: SUPPLEMENTATION THERAPY
     Route: 065
  7. CALCIUM [Suspect]
     Active Substance: CALCIUM
     Indication: MINERAL SUPPLEMENTATION
     Route: 041
  8. CALCIUM CITRATE [Suspect]
     Active Substance: CALCIUM CITRATE
     Indication: MINERAL SUPPLEMENTATION
     Route: 048

REACTIONS (5)
  - Maternal exposure during pregnancy [Unknown]
  - Calcium metabolism disorder [Recovered/Resolved]
  - Drug interaction [Recovered/Resolved]
  - Normal newborn [Unknown]
  - Off label use [Unknown]
